FAERS Safety Report 16219117 (Version 1)
Quarter: 2019Q2

REPORT INFORMATION
  Report Type: Spontaneous
  Country: US (occurrence: US)
  Receive Date: 20190419
  Receipt Date: 20190419
  Transmission Date: 20190711
  Serious: No
  Sender: FDA-Public Use
  Company Number: US-ASTRAZENECA-2019SE47784

PATIENT
  Sex: Female
  Weight: 108.9 kg

DRUGS (2)
  1. BYDUREON BCISE [Suspect]
     Active Substance: EXENATIDE
     Indication: TYPE 2 DIABETES MELLITUS
     Route: 058
  2. BYDUREON [Suspect]
     Active Substance: EXENATIDE
     Indication: TYPE 2 DIABETES MELLITUS
     Route: 058

REACTIONS (9)
  - Injection site haemorrhage [Recovered/Resolved]
  - Contusion [Recovered/Resolved]
  - Blood glucose abnormal [Recovered/Resolved]
  - Tri-iodothyronine abnormal [Unknown]
  - Blood thyroid stimulating hormone abnormal [Unknown]
  - Thyroxine abnormal [Unknown]
  - Device issue [Recovered/Resolved]
  - Injection site extravasation [Recovered/Resolved]
  - Visual impairment [Not Recovered/Not Resolved]
